FAERS Safety Report 22192041 (Version 1)
Quarter: 2023Q2

REPORT INFORMATION
  Report Type: Spontaneous
  Country: DE (occurrence: DE)
  Receive Date: 20230410
  Receipt Date: 20230410
  Transmission Date: 20230721
  Serious: Yes (Other)
  Sender: FDA-Public Use
  Company Number: DE-ELI_LILLY_AND_COMPANY-DE202304000417

PATIENT
  Age: 36 Year
  Sex: Male

DRUGS (3)
  1. ZYPADHERA [Suspect]
     Active Substance: OLANZAPINE PAMOATE
     Indication: Schizophrenia
     Dosage: UNK, UNKNOWN
     Route: 030
     Dates: start: 2019
  2. ZYPADHERA [Suspect]
     Active Substance: OLANZAPINE PAMOATE
     Indication: Schizophrenia
     Dosage: UNK, UNKNOWN
     Route: 030
     Dates: start: 2019
  3. ZYPADHERA [Suspect]
     Active Substance: OLANZAPINE PAMOATE
     Indication: Schizophrenia
     Dosage: UNK, UNKNOWN
     Route: 030
     Dates: start: 2019

REACTIONS (8)
  - Pallor [Unknown]
  - Unresponsive to stimuli [Unknown]
  - Blood pressure decreased [Unknown]
  - Post-injection delirium sedation syndrome [Unknown]
  - Fatigue [Unknown]
  - Dysarthria [Unknown]
  - Dizziness [Unknown]
  - Somnolence [Unknown]
